FAERS Safety Report 14347479 (Version 1)
Quarter: 2018Q1

REPORT INFORMATION
  Report Type: Spontaneous
  Country: US (occurrence: US)
  Receive Date: 20180103
  Receipt Date: 20180103
  Transmission Date: 20180509
  Serious: Yes (Death, Other)
  Sender: FDA-Public Use
  Company Number: US-009507513-1712USA014650

PATIENT
  Age: 69 Year
  Sex: Female

DRUGS (8)
  1. REMERON [Suspect]
     Active Substance: MIRTAZAPINE
     Route: 048
  2. AMLODIPINE [Suspect]
     Active Substance: AMLODIPINE BESYLATE
  3. FAMOTIDINE. [Suspect]
     Active Substance: FAMOTIDINE
  4. PRINIVIL [Suspect]
     Active Substance: LISINOPRIL
     Route: 048
  5. ESOMEPRAZOLE [Suspect]
     Active Substance: ESOMEPRAZOLE
  6. DILTIAZEM. [Suspect]
     Active Substance: DILTIAZEM
  7. ACETAMINOPHEN (+) OXYCODONE HYDROCHLORIDE [Suspect]
     Active Substance: ACETAMINOPHEN\OXYCODONE HYDROCHLORIDE
  8. DIAZEPAM. [Suspect]
     Active Substance: DIAZEPAM

REACTIONS (1)
  - Death [Fatal]
